FAERS Safety Report 11696064 (Version 1)
Quarter: 2015Q4

REPORT INFORMATION
  Report Type: Spontaneous
  Country: US (occurrence: None)
  Receive Date: 20151103
  Receipt Date: 20151103
  Transmission Date: 20160304
  Serious: Yes (Other)
  Sender: FDA-Public Use
  Company Number: None

PATIENT
  Age: 6 Year
  Sex: Male
  Weight: 17.24 kg

DRUGS (5)
  1. CLONIDINE HCL [Concomitant]
     Active Substance: CLONIDINE HYDROCHLORIDE
  2. ARIPIPRAZOLE. [Suspect]
     Active Substance: ARIPIPRAZOLE
     Indication: AGGRESSION
     Dosage: 5 MG, 1 TABLET, QD, PO
     Route: 048
     Dates: start: 20150601, end: 20150605
  3. ARIPIPRAZOLE. [Concomitant]
     Active Substance: ARIPIPRAZOLE
  4. TRAZODONE [Concomitant]
     Active Substance: TRAZODONE HYDROCHLORIDE
  5. ARIPIPRAZOLE. [Suspect]
     Active Substance: ARIPIPRAZOLE
     Indication: ANXIETY
     Dosage: 5 MG, 1 TABLET, QD, PO
     Route: 048
     Dates: start: 20150601, end: 20150605

REACTIONS (5)
  - Product substitution issue [None]
  - Disturbance in attention [None]
  - Aggression [None]
  - Educational problem [None]
  - Decreased activity [None]

NARRATIVE: CASE EVENT DATE: 20150601
